FAERS Safety Report 8326649-1 (Version None)
Quarter: 2012Q2

REPORT INFORMATION
  Report Type: 
  Country: None (occurrence: None)
  Receive Date: 20120501
  Receipt Date: 20090727
  Transmission Date: 20120825
  Serious: No
  Sender: FDA-Public Use
  Company Number: US-TEVA-2009007090

PATIENT
  Sex: Female
  Weight: 79.45 kg

DRUGS (1)
  1. NUVIGIL [Suspect]
     Dosage: 150 MILLIGRAM;
     Route: 048
     Dates: start: 20090619, end: 20090621

REACTIONS (2)
  - LIP DRY [None]
  - STOMATITIS [None]
